FAERS Safety Report 24683369 (Version 1)
Quarter: 2024Q4

REPORT INFORMATION
  Report Type: Report from Study
  Country: CA (occurrence: CA)
  Receive Date: 20241201
  Receipt Date: 20241201
  Transmission Date: 20250115
  Serious: Yes (Other)
  Sender: ABBVIE
  Company Number: CA-ABBVIE-6023532

PATIENT
  Age: 55 Year
  Sex: Female

DRUGS (2)
  1. RINVOQ [Suspect]
     Active Substance: UPADACITINIB
     Indication: Rheumatoid arthritis
     Dosage: FORM STRENGTH: 15 MILIGRAM
     Route: 048
     Dates: start: 20241125
  2. RINVOQ [Suspect]
     Active Substance: UPADACITINIB
     Indication: Rheumatoid arthritis
     Dosage: FORM STRENGTH: 15 MILIGRAM
     Route: 048
     Dates: start: 20211019, end: 20241108

REACTIONS (2)
  - Hip arthroplasty [Unknown]
  - Bone graft [Unknown]

NARRATIVE: CASE EVENT DATE: 20241111
